FAERS Safety Report 18406814 (Version 4)
Quarter: 2021Q1

REPORT INFORMATION
  Report Type: Report from Study
  Country: GB (occurrence: GB)
  Receive Date: 20201021
  Receipt Date: 20210226
  Transmission Date: 20210419
  Serious: Yes (Hospitalization, Other)
  Sender: FDA-Public Use
  Company Number: GB-JNJFOC-20200909567

PATIENT
  Age: 32 Year
  Sex: Female

DRUGS (7)
  1. ZOMORPH [Concomitant]
     Active Substance: MORPHINE SULFATE
     Route: 065
  2. STELARA [Suspect]
     Active Substance: USTEKINUMAB
     Indication: CROHN^S DISEASE
     Route: 058
     Dates: start: 20191118
  3. STELARA [Suspect]
     Active Substance: USTEKINUMAB
     Route: 058
     Dates: start: 20191118
  4. STELARA [Suspect]
     Active Substance: USTEKINUMAB
     Route: 058
     Dates: start: 201912
  5. ORAMORPH [Concomitant]
     Active Substance: MORPHINE SULFATE
  6. MORPHINE [Concomitant]
     Active Substance: MORPHINE
  7. METRONIDAZOLE. [Concomitant]
     Active Substance: METRONIDAZOLE
     Route: 065

REACTIONS (17)
  - Crohn^s disease [Unknown]
  - Illness [Not Recovered/Not Resolved]
  - Headache [Unknown]
  - Wound infection [Unknown]
  - Nausea [Unknown]
  - Hospitalisation [Unknown]
  - Dizziness [Unknown]
  - Dyspnoea [Unknown]
  - Taste disorder [Unknown]
  - Pruritus [Unknown]
  - Drug ineffective [Unknown]
  - Medication error [Unknown]
  - Fatigue [Unknown]
  - Pain in extremity [Unknown]
  - Pallor [Unknown]
  - Adverse drug reaction [Unknown]
  - Tremor [Unknown]

NARRATIVE: CASE EVENT DATE: 2020
